FAERS Safety Report 5493285-4 (Version None)
Quarter: 2007Q4

REPORT INFORMATION
  Report Type: 
  Country: None (occurrence: None)
  Receive Date: 20071022
  Receipt Date: 20071022
  Transmission Date: 20080405
  Serious: Yes (Other)
  Sender: FDA-Public Use
  Company Number: None

PATIENT
  Age: 21 Year
  Sex: Female

DRUGS (1)
  1. DEPAKOTE [Suspect]
     Dates: start: 20060923, end: 20061121

REACTIONS (5)
  - APPENDICITIS [None]
  - HEPATITIS C [None]
  - HEPATITIS C ANTIBODY POSITIVE [None]
  - LIVER INJURY [None]
  - PROTHROMBIN TIME PROLONGED [None]
